FAERS Safety Report 26100519 (Version 3)
Quarter: 2025Q4

REPORT INFORMATION
  Report Type: Spontaneous
  Country: US (occurrence: US)
  Receive Date: 20251128
  Receipt Date: 20251212
  Transmission Date: 20260118
  Serious: Yes (Hospitalization)
  Sender: ELI LILLY AND COMPANY
  Company Number: US-ELI_LILLY_AND_COMPANY-US202511031097

PATIENT
  Age: 69 Year
  Sex: Female

DRUGS (1)
  1. ZEPBOUND [Suspect]
     Active Substance: TIRZEPATIDE
     Indication: Weight control
     Dosage: 2.5 MG, UNKNOWN
     Route: 065
     Dates: start: 20251118

REACTIONS (7)
  - Renal failure [Recovering/Resolving]
  - Dyspnoea [Unknown]
  - Feeding disorder [Unknown]
  - Abdominal pain upper [Unknown]
  - Abdominal distension [Unknown]
  - Nausea [Unknown]
  - Diarrhoea [Unknown]
